FAERS Safety Report 5578983-6 (Version None)
Quarter: 2007Q4

REPORT INFORMATION
  Report Type: 
  Country: None (occurrence: None)
  Receive Date: 20071228
  Receipt Date: 20071221
  Transmission Date: 20080405
  Serious: Yes (Death)
  Sender: FDA-Public Use
  Company Number: 163-21880-07121279

PATIENT
  Age: 69 Year
  Sex: Male

DRUGS (1)
  1. REVLIMID [Suspect]
     Indication: ANAEMIA
     Dosage: 25 MG, DAILY, ORAL
     Route: 048
     Dates: start: 20070820, end: 20070901

REACTIONS (1)
  - DEATH [None]
